FAERS Safety Report 4375228-X (Version None)
Quarter: 2004Q2

REPORT INFORMATION
  Report Type: 
  Country: None (occurrence: None)
  Receive Date: 20040410
  Receipt Date: 20040423
  Transmission Date: 20050107
  Serious: Yes (Hospitalization)
  Sender: FDA-Public Use
  Company Number: 2003PK02167

PATIENT
  Age: 63 Year
  Sex: Male
  Weight: 120 kg

DRUGS (12)
  1. ROSUVASTATIN [Suspect]
     Indication: RENAL FAILURE CHRONIC
     Dosage: 10 MG DAILY PO
     Route: 048
     Dates: start: 20030723, end: 20031215
  2. LASIX [Concomitant]
  3. CARMEN [Concomitant]
  4. METOPROLOL TARTRATE [Concomitant]
  5. ENAHEXAL [Concomitant]
  6. EUTHYROX [Concomitant]
  7. NEORECORMON [Concomitant]
  8. FERRLECIT [Concomitant]
  9. PHOSPHONORM [Concomitant]
  10. VITAMIN B KOMPLEX [Concomitant]
  11. IMODIUM [Concomitant]
  12. EINSALPHA [Concomitant]

REACTIONS (8)
  - FALL [None]
  - GASTROENTERITIS [None]
  - GENERAL PHYSICAL HEALTH DETERIORATION [None]
  - OCCULT BLOOD POSITIVE [None]
  - POLYNEUROPATHY [None]
  - REFLEXES ABNORMAL [None]
  - RHABDOMYOLYSIS [None]
  - SENSORY LOSS [None]
